FAERS Safety Report 8366424-5 (Version None)
Quarter: 2012Q2

REPORT INFORMATION
  Report Type: 
  Country: None (occurrence: None)
  Receive Date: 20120517
  Receipt Date: 20120514
  Transmission Date: 20120825
  Serious: Yes (Death, Hospitalization, Other)
  Sender: FDA-Public Use
  Company Number: IN-PFIZER INC-2012086751

PATIENT
  Age: 67 Year
  Sex: Female

DRUGS (2)
  1. SUTENT [Suspect]
     Indication: METASTATIC RENAL CELL CARCINOMA
     Dosage: 37.5 MG, 1X/DAY
     Route: 048
     Dates: start: 20120330, end: 20120418
  2. SUTENT [Suspect]
     Dosage: 37.5 MG, 1X/DAY
     Dates: start: 20120420

REACTIONS (10)
  - OEDEMA PERIPHERAL [None]
  - MOUTH ULCERATION [None]
  - BLOOD URINE PRESENT [None]
  - DIARRHOEA [None]
  - ORAL PAIN [None]
  - DEATH [None]
  - VOMITING [None]
  - LOSS OF CONSCIOUSNESS [None]
  - APHAGIA [None]
  - FLATULENCE [None]
